FAERS Safety Report 23780507 (Version 1)
Quarter: 2024Q2

REPORT INFORMATION
  Report Type: Spontaneous
  Country: US (occurrence: US)
  Receive Date: 20240425
  Receipt Date: 20240425
  Transmission Date: 20240716
  Serious: No
  Sender: FDA-Public Use
  Company Number: US-BoehringerIngelheim-2024-BI-023614

PATIENT
  Sex: Female

DRUGS (2)
  1. OFEV [Suspect]
     Active Substance: NINTEDANIB
     Indication: Idiopathic pulmonary fibrosis
     Dates: start: 202308
  2. OFEV [Suspect]
     Active Substance: NINTEDANIB
     Dosage: 100MG IN THE MORNING, 150MG AT NIGHT

REACTIONS (5)
  - Diarrhoea [Recovered/Resolved]
  - Tooth extraction [Unknown]
  - Impaired healing [Unknown]
  - Alveolar osteitis [Not Recovered/Not Resolved]
  - Aphthous ulcer [Not Recovered/Not Resolved]

NARRATIVE: CASE EVENT DATE: 20230101
